FAERS Safety Report 15291410 (Version 1)
Quarter: 2018Q3

REPORT INFORMATION
  Report Type: Spontaneous
  Country: US (occurrence: US)
  Receive Date: 20180817
  Receipt Date: 20180817
  Transmission Date: 20181010
  Serious: No
  Sender: FDA-Public Use
  Company Number: US-PFIZER INC-2018329832

PATIENT
  Age: 5 Year
  Sex: Female

DRUGS (1)
  1. GENOTROPIN [Suspect]
     Active Substance: SOMATROPIN
     Indication: BLOOD GROWTH HORMONE ABNORMAL
     Dosage: 1.1 MG, DAILY
     Dates: start: 20170310

REACTIONS (15)
  - Weight increased [Unknown]
  - Blood triglycerides increased [Unknown]
  - Asthenia [Unknown]
  - Vitamin D decreased [Unknown]
  - Drug effect incomplete [Unknown]
  - Blood cholesterol increased [Unknown]
  - Aspartate aminotransferase decreased [Unknown]
  - Sleep apnoea syndrome [Unknown]
  - Headache [Unknown]
  - Haemoglobin decreased [Unknown]
  - Alanine aminotransferase decreased [Unknown]
  - Non-high-density lipoprotein cholesterol increased [Unknown]
  - Haematocrit decreased [Unknown]
  - Blood follicle stimulating hormone decreased [Unknown]
  - Blood glucose increased [Unknown]

NARRATIVE: CASE EVENT DATE: 20180426
